FAERS Safety Report 15747378 (Version 2)
Quarter: 2018Q4

REPORT INFORMATION
  Report Type: Spontaneous
  Country: IT (occurrence: IT)
  Receive Date: 20181220
  Receipt Date: 20181221
  Transmission Date: 20190205
  Serious: Yes (Other)
  Sender: FDA-Public Use
  Company Number: IT-SA-2018SA344573

PATIENT
  Age: 65 Year
  Sex: Male

DRUGS (6)
  1. CLEXANE [Concomitant]
     Active Substance: ENOXAPARIN SODIUM
     Route: 058
  2. DEBRIDAT [TRIMEBUTINE MALEATE] [Concomitant]
  3. ALBUMIN [Concomitant]
     Active Substance: ALBUMIN HUMAN
  4. MERREM [Concomitant]
     Active Substance: MEROPENEM
     Route: 042
  5. ZAVICEFTA [Concomitant]
     Active Substance: AVIBACTAM SODIUM\CEFTAZIDIME
     Route: 042
  6. RIFAMPICIN [Suspect]
     Active Substance: RIFAMPIN
     Indication: PNEUMONITIS
     Dosage: 1 DF, QD
     Route: 042
     Dates: start: 20181128, end: 20181130

REACTIONS (1)
  - Hyperbilirubinaemia [Unknown]

NARRATIVE: CASE EVENT DATE: 20181128
